FAERS Safety Report 7188778-8 (Version None)
Quarter: 2010Q4

REPORT INFORMATION
  Report Type: 
  Country: None (occurrence: None)
  Receive Date: 20101222
  Receipt Date: 20100727
  Transmission Date: 20110411
  Serious: No
  Sender: FDA-Public Use
  Company Number: US-AMGEN-KDL427427

PATIENT

DRUGS (5)
  1. ENBREL [Suspect]
     Indication: RHEUMATOID ARTHRITIS
     Dosage: 50 MG, QWK
     Route: 058
     Dates: start: 20080728
  2. DIURETICS [Concomitant]
  3. POTASSIUM [Concomitant]
  4. IBUPROFEN [Concomitant]
  5. FLUOXETINE HYDROCHLORIDE [Concomitant]

REACTIONS (2)
  - BURNING SENSATION [None]
  - RHEUMATOID ARTHRITIS [None]
